FAERS Safety Report 4367781-7 (Version None)
Quarter: 2004Q2

REPORT INFORMATION
  Report Type: 
  Country: None (occurrence: None)
  Receive Date: 20040601
  Receipt Date: 20040518
  Transmission Date: 20050107
  Serious: Yes (Hospitalization)
  Sender: FDA-Public Use
  Company Number: DE-MERCK-0405DEU00153

PATIENT
  Sex: Male

DRUGS (3)
  1. BISOPROLOL FUMARATE [Concomitant]
     Route: 065
  2. HYDROCHLOROTHIAZIDE AND RAMIPRIL [Concomitant]
     Route: 065
  3. ZOCOR [Suspect]
     Indication: BLOOD CHOLESTEROL INCREASED
     Route: 048
     Dates: start: 20000101, end: 20040501

REACTIONS (2)
  - LOCALISED OSTEOARTHRITIS [None]
  - POLYNEUROPATHY [None]
